FAERS Safety Report 18549259 (Version 1)
Quarter: 2020Q4

REPORT INFORMATION
  Report Type: Spontaneous
  Country: US (occurrence: US)
  Receive Date: 20201126
  Receipt Date: 20201126
  Transmission Date: 20210114
  Serious: No
  Sender: FDA-Public Use
  Company Number: US-009507513-2011USA007151

PATIENT
  Age: 70 Year
  Sex: Male
  Weight: 72.56 kg

DRUGS (4)
  1. ASMANEX HFA [Suspect]
     Active Substance: MOMETASONE FUROATE
     Dosage: 120 DOSE, 2 PUFS IN AM/1 PUFF IN EVENING
     Dates: start: 202011
  2. PROVENTIL [Concomitant]
     Active Substance: ALBUTEROL
     Dosage: UNK
  3. ASMANEX HFA [Suspect]
     Active Substance: MOMETASONE FUROATE
     Indication: ASTHMA
     Dosage: 120 DOSE, 2 PUFS IN AM/1 PUFF IN EVENING
     Dates: start: 2012
  4. ASMANEX HFA [Suspect]
     Active Substance: MOMETASONE FUROATE
     Indication: ASTHMA
     Dosage: 120 DOSE, 2 PUFFS IN AM/1 PUFF IN EVENING
     Dates: end: 202011

REACTIONS (6)
  - Feeling abnormal [Recovered/Resolved]
  - Product dose omission issue [Unknown]
  - Device malfunction [Unknown]
  - Product use issue [Unknown]
  - Dyspnoea [Recovered/Resolved]
  - Poor quality device used [Unknown]

NARRATIVE: CASE EVENT DATE: 2012
